FAERS Safety Report 18732536 (Version 1)
Quarter: 2021Q1

REPORT INFORMATION
  Report Type: Report from Study
  Country: None (occurrence: BR)
  Receive Date: 20210113
  Receipt Date: 20210113
  Transmission Date: 20210419
  Serious: Yes (Other)
  Sender: FDA-Public Use
  Company Number: BR-COEPTIS PHARMACEUTICALS, INC.-COE-2021-000002

PATIENT
  Age: 6 Year
  Sex: Male

DRUGS (6)
  1. AMLODIPINE [Suspect]
     Active Substance: AMLODIPINE BESYLATE
  2. CYCLOSPORINE. [Suspect]
     Active Substance: CYCLOSPORINE
  3. OMEPRAZOLE. [Concomitant]
     Active Substance: OMEPRAZOLE
  4. TRIMETHOPRIM?SULFAMETOXAZOL [Concomitant]
  5. ACYCLOVIR. [Concomitant]
     Active Substance: ACYCLOVIR
  6. CEFALEXIN [Concomitant]
     Active Substance: CEPHALEXIN

REACTIONS (2)
  - Pyogenic granuloma [Not Recovered/Not Resolved]
  - Gingival hypertrophy [Not Recovered/Not Resolved]
